FAERS Safety Report 6112540-8 (Version None)
Quarter: 2009Q1

REPORT INFORMATION
  Report Type: 
  Country: None (occurrence: None)
  Receive Date: 20090310
  Receipt Date: 20090303
  Transmission Date: 20090719
  Serious: Yes (Hospitalization)
  Sender: FDA-Public Use
  Company Number: GXKR2009DE02634

PATIENT
  Age: 74 Year
  Sex: Female
  Weight: 68 kg

DRUGS (9)
  1. TORSEMIDE [Suspect]
     Indication: HYPERTENSION
     Dosage: 10 MG, QD, ORAL
     Route: 048
     Dates: start: 20080825, end: 20080920
  2. XIPAMIDE (NGX) (XIPAMIDE) TABLET [Suspect]
     Indication: HYPERTENSION
     Dosage: 20 MG/DAILY, ORAL
     Route: 048
     Dates: start: 20080401, end: 20080911
  3. BISOPROLOL FUMARATE [Suspect]
     Indication: HYPERTENSION
     Dosage: 5 MG, 2 IN DAY, ORAL
     Route: 048
  4. ENALAPRIL MALEATE [Suspect]
     Indication: RENAL FAILURE
     Dosage: 10 MG/DAILY, ORAL
     Route: 048
     Dates: start: 20080401
  5. FALITHROM ^FAHLBERG^ (PHENPROCOUMON) [Concomitant]
  6. METHOTREXAT (METHOTREXATE) [Concomitant]
  7. OMEPRAZOLE ^STADA^ (OMEPRAZOLE) [Concomitant]
  8. PREDNISOLONE [Concomitant]
  9. SIMVASTATIN [Concomitant]

REACTIONS (2)
  - DEHYDRATION [None]
  - HYPOTENSION [None]
